FAERS Safety Report 4558738-1 (Version None)
Quarter: 2005Q1

REPORT INFORMATION
  Report Type: 
  Country: None (occurrence: None)
  Receive Date: 20050121
  Receipt Date: 20050121
  Transmission Date: 20050727
  Serious: No
  Sender: FDA-Public Use
  Company Number: None

PATIENT
  Sex: Female
  Weight: 133.8111 kg

DRUGS (1)
  1. CAPTOPRIL [Suspect]
     Dosage: 50MG   TID   ORAL
     Route: 048
     Dates: start: 20030716, end: 20041020

REACTIONS (1)
  - RENAL IMPAIRMENT [None]
